FAERS Safety Report 12042347 (Version 1)
Quarter: 2016Q1

REPORT INFORMATION
  Report Type: Spontaneous
  Country: US (occurrence: US)
  Receive Date: 20160208
  Receipt Date: 20160208
  Transmission Date: 20160526
  Serious: No
  Sender: FDA-Public Use
  Company Number: US-APOTEX-2015AP013702

PATIENT
  Age: 6 Decade
  Sex: Female

DRUGS (2)
  1. PAXIL [Suspect]
     Active Substance: PAROXETINE HYDROCHLORIDE
     Indication: DEPRESSION
     Dosage: UNK
     Route: 065
  2. CONTRAVE [Suspect]
     Active Substance: BUPROPION HYDROCHLORIDE\NALTREXONE HYDROCHLORIDE
     Indication: OVERWEIGHT
     Dosage: 8/90MG, DAILY
     Route: 048

REACTIONS (5)
  - Balance disorder [Unknown]
  - Labelled drug-drug interaction medication error [Unknown]
  - Impaired work ability [Unknown]
  - Dizziness [Unknown]
  - Hypersomnia [Unknown]
